FAERS Safety Report 18305591 (Version 1)
Quarter: 2020Q3

REPORT INFORMATION
  Report Type: Spontaneous
  Country: US (occurrence: US)
  Receive Date: 20200923
  Receipt Date: 20200923
  Transmission Date: 20201103
  Serious: Yes (Hospitalization)
  Sender: FDA-Public Use
  Company Number: None

PATIENT
  Age: 64 Year
  Sex: Male
  Weight: 62.14 kg

DRUGS (1)
  1. IBUPROFEN (IBUPROFEN 200MG TAB) [Suspect]
     Active Substance: IBUPROFEN
     Indication: PAIN
     Dates: start: 20200201, end: 20200429

REACTIONS (6)
  - Oesophagitis [None]
  - Haematemesis [None]
  - Haemoglobin decreased [None]
  - Upper gastrointestinal haemorrhage [None]
  - Mallory-Weiss syndrome [None]
  - Gastric varices haemorrhage [None]

NARRATIVE: CASE EVENT DATE: 20200504
